FAERS Safety Report 5352411-8 (Version None)
Quarter: 2007Q2

REPORT INFORMATION
  Report Type: 
  Country: None (occurrence: None)
  Receive Date: 20070607
  Receipt Date: 20070522
  Transmission Date: 20071010
  Serious: Yes (Death)
  Sender: FDA-Public Use
  Company Number: DSA_29996_2007

PATIENT
  Age: 43 Year
  Sex: Female

DRUGS (3)
  1. WYPAX (WYPAX) [Suspect]
     Indication: DEPRESSION
  2. AMOXAN (AMOXAN) [Suspect]
     Indication: DEPRESSION
  3. LEVOMEPROMAZINE (LEVOMEPROMAZINE) [Suspect]
     Indication: DEPRESSION

REACTIONS (8)
  - CARDIAC FAILURE ACUTE [None]
  - CARDIAC FAILURE CHRONIC [None]
  - COMPLETED SUICIDE [None]
  - DRUG TOXICITY [None]
  - INTENTIONAL OVERDOSE [None]
  - MYOCARDIAL FIBROSIS [None]
  - PULMONARY CONGESTION [None]
  - PULMONARY OEDEMA [None]
